FAERS Safety Report 8432747-4 (Version None)
Quarter: 2012Q2

REPORT INFORMATION
  Report Type: 
  Country: None (occurrence: None)
  Receive Date: 20120323
  Receipt Date: 20110712
  Transmission Date: 20120825
  Serious: Yes (Hospitalization)
  Sender: FDA-Public Use
  Company Number: 163-21880-11060702

PATIENT
  Age: 84 Year
  Sex: Female

DRUGS (4)
  1. ZOMETA [Concomitant]
  2. REVLIMID [Suspect]
     Indication: MULTIPLE MYELOMA
     Dosage: 5 MG, 1 IN 1 D, PO ; 10 MG, DAILY X 3 WEEKS/OFF 1 WEEK, PO
     Route: 048
     Dates: start: 20100801
  3. REVLIMID [Suspect]
     Indication: MULTIPLE MYELOMA
     Dosage: 5 MG, 1 IN 1 D, PO ; 10 MG, DAILY X 3 WEEKS/OFF 1 WEEK, PO
     Route: 048
     Dates: start: 20101027, end: 20110529
  4. VELCADE [Concomitant]

REACTIONS (1)
  - RENAL FAILURE [None]
